FAERS Safety Report 7907248-X (Version None)
Quarter: 2011Q4

REPORT INFORMATION
  Report Type: 
  Country: None (occurrence: None)
  Receive Date: 20111109
  Receipt Date: 20111109
  Transmission Date: 20120403
  Serious: Yes (Hospitalization)
  Sender: FDA-Public Use
  Company Number: None

PATIENT
  Sex: Female
  Weight: 40 kg

DRUGS (4)
  1. BEVACIZUMAB (RHUMAB VEGF) [Suspect]
     Dosage: 200 MG
     Dates: end: 20111101
  2. LEUCOVORIN CALCIUM [Suspect]
     Dosage: 536 MG
     Dates: end: 20111101
  3. FLUOROURACIL [Suspect]
     Dosage: 3752 MG
     Dates: end: 20111101
  4. ELOXATIN [Suspect]
     Dosage: 114 MG
     Dates: end: 20111101

REACTIONS (4)
  - NAUSEA [None]
  - ASTHENIA [None]
  - CONDITION AGGRAVATED [None]
  - VOMITING [None]
